FAERS Safety Report 6278265-3 (Version None)
Quarter: 2009Q3

REPORT INFORMATION
  Report Type: 
  Country: None (occurrence: None)
  Receive Date: 20090720
  Receipt Date: 20090720
  Transmission Date: 20100115
  Serious: Yes (Hospitalization, Other)
  Sender: FDA-Public Use
  Company Number: None

PATIENT
  Age: 15 Year
  Sex: Female

DRUGS (2)
  1. NORTREL 1/35-28 [Suspect]
     Indication: HAEMORRHAGE
     Dosage: MG X2
     Dates: start: 20070709, end: 20080601
  2. HALOPERIDOL [Suspect]
     Indication: VICTIM OF ABUSE
     Dosage: 2MG 1XPER DAY
     Dates: start: 20081025, end: 20090623

REACTIONS (1)
  - VICTIM OF ABUSE [None]
